FAERS Safety Report 9152226 (Version 3)
Quarter: 2013Q1

REPORT INFORMATION
  Report Type: Spontaneous
  Country: RO (occurrence: RO)
  Receive Date: 20130308
  Receipt Date: 20130314
  Transmission Date: 20140127
  Serious: Yes (Life-Threatening, Hospitalization)
  Sender: FDA-Public Use
  Company Number: RO-ASTRAZENECA-2013SE05361

PATIENT
  Age: 71 Year
  Sex: Female

DRUGS (11)
  1. BETALOC ZOK [Suspect]
     Indication: HYPERTENSION
     Route: 048
     Dates: end: 20130122
  2. BETALOC ZOK [Suspect]
     Indication: HYPERTENSION
     Route: 048
  3. AZD6140 [Suspect]
     Indication: CORONARY ARTERY DISEASE
     Route: 048
     Dates: start: 20110927, end: 20130122
  4. ASA [Concomitant]
     Route: 048
  5. VASOREX [Concomitant]
     Indication: HYPERTENSION
     Route: 048
     Dates: end: 20130122
  6. APROVEL [Concomitant]
     Indication: HYPERTENSION
     Route: 048
  7. TENAXUM [Concomitant]
     Indication: HYPERTENSION
     Route: 048
     Dates: start: 20120328
  8. FUROSEMIDE [Concomitant]
     Indication: DIURETIC THERAPY
     Route: 048
     Dates: start: 20110927
  9. SIMVACARD [Concomitant]
     Indication: LIPIDS ABNORMAL
     Route: 048
     Dates: end: 20130122
  10. SPIROLACTONA [Concomitant]
     Indication: HYPERTENSION
     Route: 048
     Dates: start: 20110927, end: 20130122
  11. DIGOXIN [Concomitant]
     Indication: CARDIAC FAILURE
     Route: 048

REACTIONS (1)
  - Atrial fibrillation [Not Recovered/Not Resolved]
